FAERS Safety Report 9972677 (Version 1)
Quarter: 2014Q1

REPORT INFORMATION
  Report Type: Spontaneous
  Country: US (occurrence: None)
  Receive Date: 20140128
  Receipt Date: 20140128
  Transmission Date: 20141002
  Serious: Yes (Hospitalization)
  Sender: FDA-Public Use
  Company Number: A-US2013-91099

PATIENT
  Age: 74 Year
  Sex: Female

DRUGS (4)
  1. TRACLEER [Suspect]
     Indication: PULMONARY ARTERIAL HYPERTENSION
     Route: 048
  2. TYVASO(TREPROSTINIL SODIUM) [Concomitant]
  3. SILDENAFIL(SILDENAFIL CITRATE) [Concomitant]
  4. COUMADIN(WARFARIN SODIUM) [Concomitant]

REACTIONS (3)
  - Oedema peripheral [None]
  - Abdominal distension [None]
  - Cardiac failure congestive [None]
